FAERS Safety Report 7439264-9 (Version None)
Quarter: 2011Q2

REPORT INFORMATION
  Report Type: 
  Country: None (occurrence: None)
  Receive Date: 20110427
  Receipt Date: 20070709
  Transmission Date: 20111010
  Serious: Yes (Death, Hospitalization, Disabling)
  Sender: FDA-Public Use
  Company Number: US-BAYER-200712145BWH

PATIENT
  Age: 63 Year
  Sex: Female
  Weight: 34.014 kg

DRUGS (14)
  1. TRASYLOL [Suspect]
     Indication: CARDIAC OPERATION
     Dosage: 25ML/HR, IV
     Route: 042
     Dates: start: 20010711, end: 20010711
  2. DOPAMINE HCL [Concomitant]
     Indication: BLOOD PRESSURE MANAGEMENT
     Dosage: IV DRIP TITRATED
     Route: 042
     Dates: start: 20010611, end: 20010611
  3. FENTANYL [Concomitant]
     Indication: PAIN
     Dosage: VP
     Route: 042
     Dates: start: 20010711, end: 20010711
  4. EPINEPHRINE [Concomitant]
     Indication: BLOOD PRESSURE MANAGEMENT
     Dosage: IV DRIP-TITRATED
     Route: 042
     Dates: start: 20010611
  5. NEO-SYNEPHRINOL [Concomitant]
     Indication: BLOOD PRESSURE MANAGEMENT
     Dosage: IV DRIP TITRATED
     Route: 042
     Dates: start: 20010611, end: 20010611
  6. PLATELETS [Concomitant]
     Dosage: 10 U, UNK
  7. TRASYLOL [Suspect]
     Indication: CORONARY ARTERY BYPASS
  8. RED BLOOD CELLS [Concomitant]
     Dosage: 5 U, UNK
  9. PROPOFOL [Concomitant]
     Indication: SEDATIVE THERAPY
     Dosage: IV DRIP-TITRATED
     Route: 042
     Dates: start: 20010711, end: 20010711
  10. NITROGLYCERIN [Concomitant]
     Indication: BLOOD PRESSURE MANAGEMENT
     Dosage: UNK, IV DRIP TITRATED
     Route: 042
     Dates: start: 20010711, end: 20010711
  11. VERSED [Concomitant]
     Indication: AMNESIA
     Dosage: IVP
     Route: 042
     Dates: start: 20010711, end: 20010711
  12. DOBUTREX [Concomitant]
     Indication: CARDIAC OUTPUT
     Dosage: IV DRIP TITRATED
     Dates: start: 20010611, end: 20010611
  13. ASPIRIN [Concomitant]
     Dosage: 325 MG, UNK
     Route: 048
  14. TRIDIL [Concomitant]
     Indication: BLOOD PRESSURE MANAGEMENT
     Dosage: IV DRIP-TITRATED
     Route: 042
     Dates: start: 20010711, end: 20010711

REACTIONS (9)
  - ANXIETY [None]
  - EMOTIONAL DISTRESS [None]
  - UNEVALUABLE EVENT [None]
  - FEAR [None]
  - PAIN [None]
  - ANHEDONIA [None]
  - INJURY [None]
  - DEPRESSION [None]
  - RENAL FAILURE [None]
